FAERS Safety Report 6861357-5 (Version None)
Quarter: 2010Q3

REPORT INFORMATION
  Report Type: 
  Country: None (occurrence: None)
  Receive Date: 20100715
  Receipt Date: 20100705
  Transmission Date: 20110219
  Serious: Yes (Hospitalization)
  Sender: FDA-Public Use
  Company Number: B0664950A

PATIENT
  Age: 37 Year
  Sex: Male

DRUGS (4)
  1. RETROVIR [Suspect]
     Indication: HIV INFECTION
     Dates: start: 19990101
  2. NELFINAVIR MESYLATE [Suspect]
     Indication: HIV INFECTION
     Dates: start: 19990101
  3. DIDANOSINE [Suspect]
     Indication: HIV INFECTION
     Dates: start: 19990101
  4. ITRACONAZOLE [Concomitant]

REACTIONS (3)
  - IMMUNE RECONSTITUTION SYNDROME [None]
  - MENINGITIS FUNGAL [None]
  - SPOROTRICHOSIS [None]
